FAERS Safety Report 6335408-0 (Version None)
Quarter: 2009Q3

REPORT INFORMATION
  Report Type: 
  Country: None (occurrence: None)
  Receive Date: 20090831
  Receipt Date: 20090821
  Transmission Date: 20100115
  Serious: Yes (Other)
  Sender: FDA-Public Use
  Company Number: PHEH2009US09784

PATIENT
  Sex: Female

DRUGS (2)
  1. EXJADE [Suspect]
     Dosage: 1500 MG, QD
     Route: 048
     Dates: start: 20090128
  2. EXJADE [Suspect]
     Dosage: 250 MG, UNK

REACTIONS (7)
  - ACNE [None]
  - ANXIETY [None]
  - BLISTER [None]
  - DIARRHOEA [None]
  - FAECES DISCOLOURED [None]
  - MIGRAINE [None]
  - SERUM FERRITIN INCREASED [None]
